FAERS Safety Report 9301527 (Version 1)
Quarter: 2013Q2

REPORT INFORMATION
  Report Type: Spontaneous
  Country: US (occurrence: US)
  Receive Date: 20130521
  Receipt Date: 20130521
  Transmission Date: 20140414
  Serious: Yes (Hospitalization)
  Sender: FDA-Public Use
  Company Number: US-BAYER-2013-061794

PATIENT
  Age: 20 Year
  Sex: Female
  Weight: 101 kg

DRUGS (8)
  1. YAZ [Suspect]
     Indication: CONTRACEPTION
  2. GIANVI [Suspect]
     Dosage: UNK
  3. ANTIPYRINE AND BENZOCAIN OTIC SO. [BENZOCAINE,PHENAZONE] [Concomitant]
     Dosage: UNK
     Dates: start: 20120221
  4. AZITHROMYCIN [Concomitant]
     Dosage: 250 MG, UNK
     Dates: start: 20120321
  5. CYTOMEL [Concomitant]
     Dosage: 5MCG DAILY
     Dates: start: 20120430
  6. LEXAPRO [Concomitant]
     Dosage: 20 MG,DAILY
     Dates: start: 20120430
  7. LEVOXYL [Concomitant]
     Dosage: 0.075 MG, UNK
     Dates: start: 20120430
  8. METFORMIN [Concomitant]
     Dosage: 500 MG, UNK
     Dates: start: 20120430

REACTIONS (1)
  - Pulmonary embolism [Recovering/Resolving]
